FAERS Safety Report 20519791 (Version 1)
Quarter: 2022Q1

REPORT INFORMATION
  Report Type: Spontaneous
  Country: FR (occurrence: FR)
  Receive Date: 20220225
  Receipt Date: 20220225
  Transmission Date: 20220423
  Serious: Yes (Other)
  Sender: FDA-Public Use
  Company Number: None

PATIENT
  Age: 78 Year
  Sex: Male
  Weight: 75.5 kg

DRUGS (4)
  1. BRAFTOVI [Suspect]
     Active Substance: ENCORAFENIB
     Indication: Superficial spreading melanoma stage III
     Dosage: 450 MG, DAILY
     Route: 048
     Dates: start: 20210804, end: 20210909
  2. BRAFTOVI [Suspect]
     Active Substance: ENCORAFENIB
     Dosage: 50 PERCENT OF THE INITIAL DOSE
     Route: 065
     Dates: start: 202110
  3. MEKTOVI [Suspect]
     Active Substance: BINIMETINIB
     Indication: Superficial spreading melanoma stage III
     Dosage: 45 MG, BID (2/DAY)
     Route: 048
     Dates: start: 20210804, end: 20210909
  4. MEKTOVI [Suspect]
     Active Substance: BINIMETINIB
     Dosage: 75 PERCENT OF THE INITIAL DOSE
     Route: 048
     Dates: start: 202110

REACTIONS (3)
  - Iridocyclitis [Recovered/Resolved]
  - Serous retinal detachment [Recovered/Resolved]
  - Cystoid macular oedema [Recovered/Resolved]

NARRATIVE: CASE EVENT DATE: 20210801
